FAERS Safety Report 24314474 (Version 1)
Quarter: 2024Q3

REPORT INFORMATION
  Report Type: Spontaneous
  Country: KR (occurrence: KR)
  Receive Date: 20240913
  Receipt Date: 20240913
  Transmission Date: 20241017
  Serious: Yes (Other)
  Sender: ASTELLAS
  Company Number: KR-ASTELLAS-2024-AER-003849

PATIENT
  Age: 82 Year
  Sex: Male

DRUGS (2)
  1. MIRABEGRON [Suspect]
     Active Substance: MIRABEGRON
     Indication: Benign prostatic hyperplasia
     Dosage: IN THE EVENING
     Route: 050
     Dates: start: 2024
  2. PENPOL [Concomitant]
     Indication: Prostatic disorder
     Dosage: MORNING AND EVENING
     Route: 065

REACTIONS (2)
  - Renal cancer [Unknown]
  - Off label use [Unknown]

NARRATIVE: CASE EVENT DATE: 20240101
